FAERS Safety Report 17316345 (Version 1)
Quarter: 2020Q1

REPORT INFORMATION
  Report Type: Spontaneous
  Country: US (occurrence: US)
  Receive Date: 20200124
  Receipt Date: 20200124
  Transmission Date: 20200409
  Serious: No
  Sender: FDA-Public Use
  Company Number: US-SHIRE-US202002804

PATIENT
  Age: 60 Year
  Sex: Female

DRUGS (1)
  1. VYVANSE [Suspect]
     Active Substance: LISDEXAMFETAMINE DIMESYLATE
     Indication: DEPRESSION
     Dosage: 40 MILLIGRAM, UNKNOWN
     Route: 065
     Dates: start: 201808

REACTIONS (5)
  - Mental disorder [Unknown]
  - Inappropriate schedule of product administration [Unknown]
  - Headache [Unknown]
  - Intentional product use issue [Unknown]
  - Condition aggravated [Unknown]
